FAERS Safety Report 6036402-X (Version None)
Quarter: 2009Q1

REPORT INFORMATION
  Report Type: 
  Country: None (occurrence: None)
  Receive Date: 20090112
  Receipt Date: 20081222
  Transmission Date: 20090719
  Serious: Yes (Hospitalization)
  Sender: FDA-Public Use
  Company Number: 08-002020

PATIENT
  Age: 65 Year
  Sex: Male
  Weight: 102 kg

DRUGS (4)
  1. DOVONEX [Suspect]
     Indication: PSORIASIS
     Dosage: 0.005%, TOPICAL
     Route: 061
  2. DOVONEX [Suspect]
     Indication: PSORIASIS
     Dosage: 0.005%, TOPICAL
     Route: 061
  3. ASPIRIN [Concomitant]
  4. OMEPRAZOLE [Concomitant]

REACTIONS (2)
  - DRUG EFFECT DECREASED [None]
  - NEPHROLITHIASIS [None]
